FAERS Safety Report 6666098-5 (Version None)
Quarter: 2010Q1

REPORT INFORMATION
  Report Type: 
  Country: None (occurrence: None)
  Receive Date: 20100330
  Receipt Date: 20100308
  Transmission Date: 20100710
  Serious: No
  Sender: FDA-Public Use
  Company Number: 10-002

PATIENT
  Age: 86 Year
  Sex: Male
  Weight: 62.5964 kg

DRUGS (2)
  1. GAVILYTE - G (PEG-3350 [236G] AND ELECTROLYTES) [Suspect]
     Indication: COLONOSCOPY
     Dosage: SEE IMAGE
     Dates: start: 20100305
  2. GAVILYTE - G (PEG-3350 [236G] AND ELECTROLYTES) [Suspect]
     Indication: PREOPERATIVE CARE
     Dosage: SEE IMAGE
     Dates: start: 20100305

REACTIONS (2)
  - DYSPNOEA [None]
  - TREMOR [None]
